FAERS Safety Report 25048240 (Version 1)
Quarter: 2025Q1

REPORT INFORMATION
  Report Type: Spontaneous
  Country: US (occurrence: US)
  Receive Date: 20250307
  Receipt Date: 20250307
  Transmission Date: 20250409
  Serious: No
  Sender: BOEHRINGER INGELHEIM
  Company Number: US-BoehringerIngelheim-2025-BI-013593

PATIENT
  Age: 58 Year
  Sex: Female

DRUGS (3)
  1. JARDIANCE [Suspect]
     Active Substance: EMPAGLIFLOZIN
     Indication: Product used for unknown indication
  2. TRULICITY [Suspect]
     Active Substance: DULAGLUTIDE
     Indication: Type 2 diabetes mellitus
  3. TRULICITY [Suspect]
     Active Substance: DULAGLUTIDE

REACTIONS (8)
  - Sinusitis [Unknown]
  - Cold sweat [Unknown]
  - Blood glucose increased [Unknown]
  - Discomfort [Unknown]
  - Chest discomfort [Unknown]
  - Dizziness [Unknown]
  - Flatulence [Unknown]
  - Glycosylated haemoglobin increased [Unknown]

NARRATIVE: CASE EVENT DATE: 20250209
